FAERS Safety Report 16720997 (Version 2)
Quarter: 2019Q3

REPORT INFORMATION
  Report Type: Spontaneous
  Country: AU (occurrence: AU)
  Receive Date: 20190820
  Receipt Date: 20190914
  Transmission Date: 20191005
  Serious: Yes (Other)
  Sender: FDA-Public Use
  Company Number: AU-AMGEN-AUSSP2019130770

PATIENT
  Age: 91 Year
  Sex: Female
  Weight: 45 kg

DRUGS (1)
  1. PROLIA [Suspect]
     Active Substance: DENOSUMAB
     Indication: PRODUCT USED FOR UNKNOWN INDICATION
     Dosage: UNK
     Route: 065

REACTIONS (7)
  - Pelvic fracture [Unknown]
  - Foot fracture [Unknown]
  - Fractured sacrum [Unknown]
  - Pubis fracture [Unknown]
  - Fractured ischium [Unknown]
  - Hip fracture [Unknown]
  - Thoracic vertebral fracture [Unknown]

NARRATIVE: CASE EVENT DATE: 20190522
